FAERS Safety Report 17292370 (Version 1)
Quarter: 2020Q1

REPORT INFORMATION
  Report Type: Spontaneous
  Country: FR (occurrence: FR)
  Receive Date: 20200121
  Receipt Date: 20200121
  Transmission Date: 20200409
  Serious: Yes (Hospitalization)
  Sender: FDA-Public Use
  Company Number: FR-BAYER-2019-228726

PATIENT
  Age: 66 Year
  Sex: Male
  Weight: 98 kg

DRUGS (16)
  1. CIFLOX [Suspect]
     Active Substance: CIPROFLOXACIN
     Indication: MORGANELLA INFECTION
     Dosage: UNK
     Route: 048
     Dates: start: 20191104, end: 20191111
  2. SIMVASTATINE [Concomitant]
     Active Substance: SIMVASTATIN
     Dosage: UNK
     Route: 048
  3. LEVOTHYROX [Concomitant]
     Active Substance: LEVOTHYROXINE
     Dosage: 100 MG
     Route: 048
  4. GLUCOBAY [Suspect]
     Active Substance: ACARBOSE
     Dosage: UNK
     Route: 048
  5. BACTRIM [Suspect]
     Active Substance: SULFAMETHOXAZOLE\TRIMETHOPRIM
     Indication: ANTIFUNGAL PROPHYLAXIS
     Dosage: 3 DF, OW
     Route: 048
     Dates: start: 20191015, end: 20191113
  6. CEFTRIAXONE SODIQUE TM [Suspect]
     Active Substance: CEFTRIAXONE SODIUM
     Indication: MORGANELLA INFECTION
     Dosage: UNK
     Route: 040
     Dates: start: 20191104, end: 20191111
  7. VALACICLOVIR [VALACICLOVIR HYDROCHLORIDE] [Concomitant]
     Dosage: UNK
     Route: 048
     Dates: start: 20191015
  8. MOXONIDINE [Concomitant]
     Active Substance: MOXONIDINE
     Dosage: UNK
     Route: 048
  9. ACIDE FOLIQUE [Concomitant]
     Active Substance: FOLIC ACID
     Dosage: UNK
     Route: 048
  10. DIAMICRON [Concomitant]
     Active Substance: GLICLAZIDE
     Route: 048
  11. PERINDOPRIL [Suspect]
     Active Substance: PERINDOPRIL
     Indication: HYPERTENSION
     Dosage: 10 MG, QD
     Route: 048
     Dates: end: 20191110
  12. LERCANIDIPINE HYDROCHLORIDE [Concomitant]
     Active Substance: LERCANIDIPINE HYDROCHLORIDE
     Dosage: UNK
     Route: 048
  13. KARDEGIC [Concomitant]
     Active Substance: ASPIRIN DL-LYSINE
     Dosage: 75 MG
     Route: 048
  14. METFORMINE [METFORMIN] [Concomitant]
     Active Substance: METFORMIN HYDROCHLORIDE
     Dosage: UNK
     Route: 048
  15. XELEVIA [Concomitant]
     Active Substance: SITAGLIPTIN PHOSPHATE
     Dosage: UNK
     Route: 048
  16. BISOPROLOL [BISOPROLOL FUMARATE] [Concomitant]
     Active Substance: BISOPROLOL FUMARATE
     Dosage: UNK
     Route: 048

REACTIONS (1)
  - Acute kidney injury [Recovering/Resolving]

NARRATIVE: CASE EVENT DATE: 20191113
